FAERS Safety Report 6341712-2 (Version None)
Quarter: 2009Q3

REPORT INFORMATION
  Report Type: 
  Country: None (occurrence: None)
  Receive Date: 20090904
  Receipt Date: 20090831
  Transmission Date: 20100115
  Serious: Yes (Hospitalization)
  Sender: FDA-Public Use
  Company Number: DE-ABBOTT-09P-062-0594212-00

PATIENT
  Sex: Female

DRUGS (1)
  1. HUMIRA [Suspect]
     Indication: PSORIASIS
     Dosage: 40 MG EOW
     Route: 058
     Dates: start: 20090218, end: 20090801

REACTIONS (2)
  - ADNEXA UTERI MASS [None]
  - IRRITABLE BOWEL SYNDROME [None]
